FAERS Safety Report 24003404 (Version 1)
Quarter: 2024Q2

REPORT INFORMATION
  Report Type: Report from Study
  Country: US (occurrence: US)
  Receive Date: 20240624
  Receipt Date: 20240624
  Transmission Date: 20240716
  Serious: Yes (Hospitalization)
  Sender: FDA-Public Use
  Company Number: US-ROCHE-10000004290

PATIENT
  Age: 65 Year
  Sex: Female

DRUGS (5)
  1. OCREVUS [Suspect]
     Active Substance: OCRELIZUMAB
     Indication: Multiple sclerosis relapse
     Route: 065
  2. NATALIZUMAB [Concomitant]
     Active Substance: NATALIZUMAB
     Route: 065
     Dates: start: 20210607, end: 20221007
  3. BIOTIN [Concomitant]
     Active Substance: BIOTIN
  4. HYDROCODONE [Concomitant]
     Active Substance: HYDROCODONE
  5. TAMSULOSIN [Concomitant]
     Active Substance: TAMSULOSIN

REACTIONS (1)
  - Pneumonia [Unknown]

NARRATIVE: CASE EVENT DATE: 20240322
